FAERS Safety Report 4730611-5 (Version None)
Quarter: 2005Q3

REPORT INFORMATION
  Report Type: 
  Country: None (occurrence: None)
  Receive Date: 20050801
  Receipt Date: 20050513
  Transmission Date: 20060218
  Serious: Yes (Hospitalization)
  Sender: FDA-Public Use
  Company Number: RU-BOEHRINGER INGELHEIM PHARMACEUTICALS, INC.-2005-AP-00292AP

PATIENT
  Sex: Female
  Weight: 90 kg

DRUGS (5)
  1. SPIRIVA [Suspect]
     Indication: BRONCHITIS CHRONIC
     Route: 055
     Dates: start: 20050322, end: 20050324
  2. BECLOMETHASONE DIPROPIONATE [Concomitant]
     Indication: ASTHMA
     Route: 055
     Dates: start: 20050110
  3. BEROTEC [Concomitant]
     Indication: ASTHMA
     Route: 055
     Dates: start: 20050110
  4. FORADIL [Concomitant]
     Indication: ASTHMA
     Route: 055
     Dates: start: 20050110, end: 20050320
  5. INDAPAMID [Concomitant]
     Route: 048
     Dates: start: 20050110

REACTIONS (5)
  - ASTHMA [None]
  - CONDITION AGGRAVATED [None]
  - DRY MOUTH [None]
  - DYSURIA [None]
  - HEADACHE [None]
